FAERS Safety Report 8017892-X (Version None)
Quarter: 2012Q1

REPORT INFORMATION
  Report Type: 
  Country: None (occurrence: None)
  Receive Date: 20120103
  Receipt Date: 20111206
  Transmission Date: 20120608
  Serious: Yes (Other)
  Sender: FDA-Public Use
  Company Number: US-BAYER-2011-122766

PATIENT
  Sex: Female

DRUGS (1)
  1. MIRENA [Suspect]
     Dosage: 20 MCG/24HR, CONT
     Dates: start: 20111101

REACTIONS (6)
  - POST PROCEDURAL HAEMORRHAGE [None]
  - VULVOVAGINAL PAIN [None]
  - VULVOVAGINAL SWELLING [None]
  - MOOD SWINGS [None]
  - VAGINAL INFLAMMATION [None]
  - MASS [None]
